FAERS Safety Report 10210533 (Version 4)
Quarter: 2014Q4

REPORT INFORMATION
  Report Type: Spontaneous
  Country: US (occurrence: None)
  Receive Date: 20140528
  Receipt Date: 20141219
  Transmission Date: 20150528
  Serious: Yes (Other)
  Sender: FDA-Public Use
  Company Number: ADR-2014-00881

PATIENT
  Age: 66 Year
  Sex: Male

DRUGS (4)
  1. MORPHINE INTRATHECAL [Suspect]
     Active Substance: MORPHINE
  2. BUPIVACAINE [Suspect]
     Active Substance: BUPIVACAINE
     Dosage: 2.8504MG/DAY
  3. BACLOFEN INTRATHECAL [Suspect]
     Active Substance: BACLOFEN
     Indication: PAIN
     Dosage: 57.01MCG/DAY
  4. HYDROMORPHONE [Suspect]
     Active Substance: HYDROMORPHONE
     Dosage: 3.801MG/DAY?

REACTIONS (13)
  - Gastric disorder [None]
  - Drug effect decreased [None]
  - Product quality issue [None]
  - Device damage [None]
  - Pain [None]
  - Feeling hot [None]
  - Device leakage [None]
  - Treatment noncompliance [None]
  - Diarrhoea [None]
  - Myalgia [None]
  - Device connection issue [None]
  - Drug withdrawal syndrome [None]
  - Quality of life decreased [None]
